FAERS Safety Report 15842195 (Version 1)
Quarter: 2019Q1

REPORT INFORMATION
  Report Type: Spontaneous
  Country: DE (occurrence: DE)
  Receive Date: 20190118
  Receipt Date: 20190118
  Transmission Date: 20190417
  Serious: Yes (Hospitalization, Other)
  Sender: FDA-Public Use
  Company Number: DE-TORRENT-00012958

PATIENT
  Sex: Male

DRUGS (1)
  1. PANTOPRAZOL HEUMANN 40MG MAGENSAFTRESISTENTE TABLETTEN [Suspect]
     Active Substance: PANTOPRAZOLE SODIUM
     Indication: ABDOMINAL DISCOMFORT
     Dosage: UNKNOWN
     Route: 048

REACTIONS (8)
  - Condition aggravated [Unknown]
  - Myalgia [Unknown]
  - Arthralgia [Unknown]
  - Weight decreased [Unknown]
  - Circulatory collapse [Unknown]
  - Sleep disorder [Unknown]
  - Liver function test abnormal [Unknown]
  - Depression [Unknown]
